FAERS Safety Report 23398281 (Version 2)
Quarter: 2024Q2

REPORT INFORMATION
  Report Type: Spontaneous
  Country: US (occurrence: US)
  Receive Date: 20240112
  Receipt Date: 20240412
  Transmission Date: 20240716
  Serious: Yes (Hospitalization)
  Sender: FDA-Public Use
  Company Number: US-PFIZER INC-202400009616

PATIENT
  Age: 47 Year
  Sex: Female
  Weight: 85.73 kg

DRUGS (2)
  1. OXBRYTA [Suspect]
     Active Substance: VOXELOTOR
     Indication: Sickle cell anaemia
     Dosage: 3 DF, 1X/DAY
     Dates: start: 202003
  2. OXBRYTA [Suspect]
     Active Substance: VOXELOTOR
     Dosage: 500MG 3 TABLETS ONCE DAILY
     Route: 048
     Dates: start: 202004

REACTIONS (4)
  - Sickle cell disease [Unknown]
  - Skin mass [Not Recovered/Not Resolved]
  - Proteinuria [Unknown]
  - Intentional dose omission [Unknown]
